FAERS Safety Report 25967955 (Version 1)
Quarter: 2025Q4

REPORT INFORMATION
  Report Type: Spontaneous
  Country: US (occurrence: US)
  Receive Date: 20251028
  Receipt Date: 20251028
  Transmission Date: 20260118
  Serious: Yes (Other)
  Sender: SANOFI AVENTIS
  Company Number: US-SANOFI-02691852

PATIENT
  Age: 82 Year
  Sex: Male

DRUGS (3)
  1. DUPIXENT [Suspect]
     Active Substance: DUPILUMAB
     Indication: Asthma
     Dosage: 300 MG, QOW
  2. MOMETASONE [Concomitant]
     Active Substance: MOMETASONE
     Dosage: 2 DF, BID
  3. CETIRIZINE [Concomitant]
     Active Substance: CETIRIZINE HYDROCHLORIDE
     Dosage: UNK UNK, QD: IN THE MORNING

REACTIONS (3)
  - Cataract [Unknown]
  - Eye discharge [Unknown]
  - Erythema [Unknown]

NARRATIVE: CASE EVENT DATE: 20240101
